FAERS Safety Report 15557790 (Version 1)
Quarter: 2018Q4

REPORT INFORMATION
  Report Type: Spontaneous
  Country: US (occurrence: US)
  Receive Date: 20181027
  Receipt Date: 20181027
  Transmission Date: 20190205
  Serious: Yes (Hospitalization, Other)
  Sender: FDA-Public Use
  Company Number: US-MACLEODS PHARMACEUTICALS US LTD-MAC2018018079

PATIENT

DRUGS (1)
  1. QUETIAPINE 300 MG [Suspect]
     Active Substance: QUETIAPINE
     Indication: SCHIZOAFFECTIVE DISORDER
     Dosage: UNK
     Route: 065
     Dates: start: 201302

REACTIONS (2)
  - Pancreatitis relapsing [Recovered/Resolved]
  - Hypertriglyceridaemia [Recovered/Resolved]
